FAERS Safety Report 5277546-X (Version None)
Quarter: 2007Q1

REPORT INFORMATION
  Report Type: 
  Country: None (occurrence: None)
  Receive Date: 20070327
  Receipt Date: 20070315
  Transmission Date: 20070707
  Serious: Yes (Hospitalization)
  Sender: FDA-Public Use
  Company Number: HQWYE878215MAR07

PATIENT
  Sex: Male

DRUGS (7)
  1. CORDARONE [Suspect]
     Indication: ARRHYTHMIA
     Route: 048
     Dates: start: 20060101, end: 20070127
  2. FUROSEMIDE [Concomitant]
     Route: 065
  3. FERROUS GLUCONATE [Concomitant]
     Route: 048
  4. GLIBENCLAMIDE [Concomitant]
     Dosage: 5 MG
     Route: 048
  5. METFORMIN HCL [Concomitant]
     Dosage: 500 MG
     Route: 048
  6. LANOXIN [Suspect]
     Indication: ARRHYTHMIA
     Route: 048
     Dates: start: 20060101, end: 20070127
  7. ALDACTONE [Concomitant]
     Dosage: UNKNOWN
     Route: 065

REACTIONS (7)
  - ANOREXIA [None]
  - ASTHENIA [None]
  - BLOOD POTASSIUM INCREASED [None]
  - BLOOD THYROID STIMULATING HORMONE INCREASED [None]
  - COUGH [None]
  - IRON DEFICIENCY ANAEMIA [None]
  - MICROCYTIC ANAEMIA [None]
